FAERS Safety Report 18380161 (Version 1)
Quarter: 2020Q4

REPORT INFORMATION
  Report Type: Spontaneous
  Country: US (occurrence: US)
  Receive Date: 20201013
  Receipt Date: 20201013
  Transmission Date: 20210114
  Serious: Yes (Other)
  Sender: FDA-Public Use
  Company Number: US-BAUSCH-BL-2020-029371

PATIENT
  Age: 76 Year
  Sex: Female

DRUGS (1)
  1. BALSALAZIDE [Suspect]
     Active Substance: BALSALAZIDE
     Indication: COLITIS ULCERATIVE
     Route: 065

REACTIONS (1)
  - Treatment failure [Unknown]
